FAERS Safety Report 6071596-1 (Version None)
Quarter: 2009Q1

REPORT INFORMATION
  Report Type: 
  Country: None (occurrence: None)
  Receive Date: 20090205
  Receipt Date: 20090205
  Transmission Date: 20090719
  Serious: Yes (Death)
  Sender: FDA-Public Use
  Company Number: None

PATIENT
  Age: 62 Year
  Sex: Female

DRUGS (2)
  1. SORAFENIB [Suspect]
     Indication: GLIOMA
     Dosage: 200MG/ BID
     Dates: start: 20080409, end: 20080428
  2. TEMOZOLOMIDE [Suspect]
     Dosage: 75MG/ BID
     Dates: start: 20080417, end: 20080423

REACTIONS (2)
  - BRAIN NEOPLASM [None]
  - DISEASE PROGRESSION [None]
